FAERS Safety Report 17699916 (Version 1)
Quarter: 2020Q2

REPORT INFORMATION
  Report Type: Spontaneous
  Country: DE (occurrence: DE)
  Receive Date: 20200423
  Receipt Date: 20200423
  Transmission Date: 20200714
  Serious: Yes (Death, Other)
  Sender: FDA-Public Use
  Company Number: DE-SHIRE-DE202013656

PATIENT

DRUGS (1)
  1. HYQVIA [Suspect]
     Active Substance: HUMAN IMMUNOGLOBULIN G\HYALURONIDASE RECOMBINANT HUMAN
     Indication: IMMUNODEFICIENCY
     Route: 058

REACTIONS (3)
  - Cerebral haemorrhage [Fatal]
  - Language disorder [Fatal]
  - Headache [Fatal]

NARRATIVE: CASE EVENT DATE: 20200319
